FAERS Safety Report 6554142-5 (Version None)
Quarter: 2010Q1

REPORT INFORMATION
  Report Type: 
  Country: None (occurrence: None)
  Receive Date: 20100125
  Receipt Date: 20100125
  Transmission Date: 20100710
  Serious: No
  Sender: FDA-Public Use
  Company Number: None

PATIENT
  Age: 55 Year
  Sex: Female
  Weight: 76.2043 kg

DRUGS (1)
  1. ZICAM NASAL SPRAY [Suspect]
     Indication: NASOPHARYNGITIS
     Dates: start: 20041101, end: 20041101

REACTIONS (5)
  - ANOSMIA [None]
  - HYPOGEUSIA [None]
  - HYPOSMIA [None]
  - NASAL DISCOMFORT [None]
  - NECK PAIN [None]
